FAERS Safety Report 25519363 (Version 3)
Quarter: 2025Q4

REPORT INFORMATION
  Report Type: Spontaneous
  Country: US (occurrence: US)
  Receive Date: 20250704
  Receipt Date: 20251112
  Transmission Date: 20260118
  Serious: No
  Sender: Kenvue
  Company Number: US-KENVUE-20250611091

PATIENT
  Age: 56 Year
  Sex: Female
  Weight: 66.7 kg

DRUGS (4)
  1. WOMENS ROGAINE UNSCENTED [Suspect]
     Active Substance: MINOXIDIL
     Indication: Alopecia
     Dosage: 1 CAPFUL, ONCE A DAY
     Route: 061
     Dates: start: 20250602, end: 20250610
  2. ESTRADIOL [Concomitant]
     Active Substance: ESTRADIOL
     Indication: Menopause
     Dosage: UNK
     Route: 065
     Dates: start: 2020
  3. NORETHINDRONE [Concomitant]
     Active Substance: NORETHINDRONE
     Indication: Menopause
     Dosage: UNK
     Route: 065
     Dates: start: 2025
  4. UNSPECIFIED INGREDIENT [Concomitant]
     Active Substance: UNSPECIFIED INGREDIENT
     Indication: Product used for unknown indication
     Route: 065

REACTIONS (8)
  - Application site rash [Unknown]
  - Application site ulcer [Recovered/Resolved]
  - Application site pain [Unknown]
  - Rash [Unknown]
  - Application site pruritus [Unknown]
  - Application site haemorrhage [Unknown]
  - Off label use [Unknown]
  - Overdose [Unknown]

NARRATIVE: CASE EVENT DATE: 20250601
